FAERS Safety Report 8991177 (Version 1)
Quarter: 2012Q4

REPORT INFORMATION
  Report Type: Spontaneous
  Country: US (occurrence: None)
  Receive Date: 20121227
  Receipt Date: 20121227
  Transmission Date: 20130627
  Serious: No
  Sender: FDA-Public Use
  Company Number: None

PATIENT
  Sex: Female

DRUGS (1)
  1. ENBREL 50MG AMGEN [Suspect]
     Indication: RHEUMATOID ARTHRITIS
     Dosage: 50mg qw sq
     Route: 058
     Dates: start: 201202

REACTIONS (4)
  - Injection site reaction [None]
  - Tendonitis [None]
  - Meralgia paraesthetica [None]
  - Atrial septal defect [None]
